FAERS Safety Report 13894465 (Version 3)
Quarter: 2021Q4

REPORT INFORMATION
  Report Type: Spontaneous
  Country: CH (occurrence: CH)
  Receive Date: 20170823
  Receipt Date: 20211124
  Transmission Date: 20220304
  Serious: Yes (Hospitalization, Other)
  Sender: FDA-Public Use
  Company Number: CH-AMGEN-CHESP2017126079

PATIENT
  Age: 71 Year
  Sex: Female
  Weight: 52 kg

DRUGS (6)
  1. PROLIA [Suspect]
     Active Substance: DENOSUMAB
     Indication: Osteoporosis
     Dosage: 60 MG, Q6MO
     Route: 058
     Dates: start: 20151221
  2. KYPROLIS [Suspect]
     Active Substance: CARFILZOMIB
     Indication: Off label use
     Dosage: UNK
     Route: 065
  3. KYPROLIS [Suspect]
     Active Substance: CARFILZOMIB
     Indication: Product used for unknown indication
  4. PREDNISOLONE [Suspect]
     Active Substance: PREDNISOLONE
     Indication: Axial spondyloarthritis
     Dosage: 5 MG, UNK
     Route: 065
     Dates: start: 20140204
  5. TERIPARATIDE [Concomitant]
     Active Substance: TERIPARATIDE
     Indication: Osteoporosis
     Dosage: 20 MUG, UNK
     Dates: start: 20170704
  6. HUMIRA [Concomitant]
     Active Substance: ADALIMUMAB
     Indication: Axial spondyloarthritis
     Dosage: 40 MG, UNK
     Dates: start: 20170321

REACTIONS (2)
  - Spinal fracture [Unknown]
  - Off label use [Unknown]

NARRATIVE: CASE EVENT DATE: 20170701
